FAERS Safety Report 6428245-X (Version None)
Quarter: 2009Q4

REPORT INFORMATION
  Report Type: 
  Country: None (occurrence: None)
  Receive Date: 20091104
  Receipt Date: 20091104
  Transmission Date: 20100525
  Serious: Yes (Hospitalization)
  Sender: FDA-Public Use
  Company Number: None

PATIENT
  Age: 55 Year

DRUGS (2)
  1. VANCOMYCIN [Suspect]
     Indication: WOUND INFECTION
     Dosage: 1250 MG BID IV
     Route: 042
     Dates: start: 20090704, end: 20090729
  2. PIPERACILLIN AND TAZOBACTAM [Suspect]
     Dosage: 3.375 MG QID

REACTIONS (3)
  - DRUG LEVEL ABOVE THERAPEUTIC [None]
  - DYSGEUSIA [None]
  - RENAL FAILURE ACUTE [None]
